FAERS Safety Report 10008856 (Version 1)
Quarter: 2014Q1

REPORT INFORMATION
  Report Type: Spontaneous
  Country: US (occurrence: US)
  Receive Date: 20140313
  Receipt Date: 20140313
  Transmission Date: 20141002
  Serious: Yes (Other)
  Sender: FDA-Public Use
  Company Number: PHHY2014US030287

PATIENT
  Sex: Female

DRUGS (2)
  1. LIORESAL INTRATECAL [Suspect]
     Dosage: UNK UKN, UNK
     Route: 037
  2. IBUPROFEN [Suspect]
     Indication: FRACTURE PAIN
     Dosage: UNK UKN, UNK

REACTIONS (3)
  - Skin depigmentation [Unknown]
  - Lumbar vertebral fracture [Unknown]
  - Fracture pain [Unknown]
